FAERS Safety Report 15126009 (Version 2)
Quarter: 2018Q3

REPORT INFORMATION
  Report Type: Spontaneous
  Country: AU (occurrence: AU)
  Receive Date: 20180710
  Receipt Date: 20180817
  Transmission Date: 20181010
  Serious: Yes (Other)
  Sender: FDA-Public Use
  Company Number: AU-LPDUSPRD-20181222

PATIENT

DRUGS (1)
  1. FERINJECT [Suspect]
     Active Substance: FERRIC CARBOXYMALTOSE
     Dosage: 11 GRAM OVER 12 MONTHS
     Route: 042

REACTIONS (4)
  - Osteomalacia [Unknown]
  - Blood phosphorus decreased [Unknown]
  - Product use in unapproved indication [Unknown]
  - Fatigue [Unknown]
